FAERS Safety Report 15471517 (Version 2)
Quarter: 2018Q4

REPORT INFORMATION
  Report Type: Spontaneous
  Country: US (occurrence: US)
  Receive Date: 20181007
  Receipt Date: 20181024
  Transmission Date: 20190205
  Serious: No
  Sender: FDA-Public Use
  Company Number: US-BIOGEN-2018BI00640283

PATIENT
  Sex: Male

DRUGS (1)
  1. TECFIDERA [Suspect]
     Active Substance: DIMETHYL FUMARATE
     Indication: MULTIPLE SCLEROSIS
     Route: 065
     Dates: start: 20140917, end: 20171201

REACTIONS (5)
  - Arthralgia [Unknown]
  - Multiple sclerosis [Not Recovered/Not Resolved]
  - Dysgraphia [Unknown]
  - Gait disturbance [Unknown]
  - Fall [Recovered/Resolved]
